FAERS Safety Report 6844778-6 (Version None)
Quarter: 2010Q3

REPORT INFORMATION
  Report Type: 
  Country: None (occurrence: None)
  Receive Date: 20100713
  Receipt Date: 20100628
  Transmission Date: 20110219
  Serious: Yes (Other)
  Sender: FDA-Public Use
  Company Number: ACO_01254_2010

PATIENT
  Sex: Female
  Weight: 97.5234 kg

DRUGS (7)
  1. AMPYRA [Suspect]
     Indication: BALANCE DISORDER
     Dosage: 10 MG BID ORAL
     Route: 048
     Dates: start: 20100625
  2. AMPYRA [Suspect]
     Indication: GAIT DISTURBANCE
     Dosage: 10 MG BID ORAL
     Route: 048
     Dates: start: 20100625
  3. CYMBALTA [Concomitant]
  4. BENICAR [Concomitant]
  5. METOPROLOL SUCCINATE [Concomitant]
  6. MULTI-VITAMINS [Concomitant]
  7. SUPER B COMPLEX /0644901/ [Concomitant]

REACTIONS (3)
  - DYSKINESIA [None]
  - MUSCLE SPASMS [None]
  - PAIN IN EXTREMITY [None]
